FAERS Safety Report 26172009 (Version 1)
Quarter: 2025Q4

REPORT INFORMATION
  Report Type: Report from Study
  Country: CA (occurrence: CA)
  Receive Date: 20251217
  Receipt Date: 20251217
  Transmission Date: 20260118
  Serious: Yes (Other)
  Sender: ABBVIE
  Company Number: CA-ABBVIE-6585385

PATIENT
  Age: 51 Year
  Sex: Female

DRUGS (1)
  1. SKYRIZI [Suspect]
     Active Substance: RISANKIZUMAB-RZAA
     Indication: Crohn^s disease
     Dosage: SOLUTION FOR INJECTION IN CARTRIDGE
     Route: 058

REACTIONS (5)
  - Splenectomy [Unknown]
  - Localised infection [Unknown]
  - Discharge [Unknown]
  - C-reactive protein increased [Unknown]
  - Malaise [Unknown]

NARRATIVE: CASE EVENT DATE: 20251210
